FAERS Safety Report 6405234-2 (Version None)
Quarter: 2009Q4

REPORT INFORMATION
  Report Type: 
  Country: None (occurrence: None)
  Receive Date: 20091019
  Receipt Date: 20091013
  Transmission Date: 20100525
  Serious: Yes (Hospitalization)
  Sender: FDA-Public Use
  Company Number: US-ALEXION-A200900800

PATIENT
  Sex: Male

DRUGS (11)
  1. SOLIRIS [Suspect]
     Indication: PAROXYSMAL NOCTURNAL HAEMOGLOBINURIA
     Dosage: 600 MG, UNK
     Route: 042
     Dates: start: 20080128, end: 20080218
  2. SOLIRIS [Suspect]
     Dosage: 900 MG, Q 2 WKS
     Route: 042
     Dates: start: 20080225, end: 20080728
  3. SOLIRIS [Suspect]
     Dosage: 900 MG, Q 2 WKS
     Route: 042
     Dates: start: 20080918
  4. SOLIRIS [Suspect]
     Dosage: 900 MG, Q WK
     Route: 042
  5. ALLOPURINOL [Concomitant]
     Dosage: 100 MG, QD
     Dates: start: 20090312
  6. AMBIEN [Concomitant]
     Dosage: 5 MG, QHS
     Route: 048
     Dates: start: 20090305
  7. EXJADE [Concomitant]
     Dosage: 1500 MG, QD
     Dates: start: 20090928
  8. FOLIC ACID [Concomitant]
     Dosage: 1 MG, UNK
     Dates: start: 20090402
  9. LASIX [Concomitant]
     Dosage: 20 MG, QD
     Dates: start: 20090521
  10. MEDROL [Concomitant]
     Dosage: 4 MG, AS DIRECTED
     Dates: start: 20090727
  11. TOPROL-XL [Concomitant]
     Dosage: 25 MG, Q 24 HR
     Dates: start: 20090629

REACTIONS (1)
  - PLEURAL EFFUSION [None]
